FAERS Safety Report 12094546 (Version 3)
Quarter: 2016Q2

REPORT INFORMATION
  Report Type: Report from Study
  Country: US (occurrence: US)
  Receive Date: 20160219
  Receipt Date: 20160627
  Transmission Date: 20160815
  Serious: Yes (Other)
  Sender: FDA-Public Use
  Company Number: US-JNJFOC-20160210411

PATIENT
  Sex: Female

DRUGS (12)
  1. REMICADE [Suspect]
     Active Substance: INFLIXIMAB
     Indication: AUTOIMMUNE ARTHRITIS
     Route: 042
     Dates: start: 2012
  2. LIPITOR [Concomitant]
     Active Substance: ATORVASTATIN CALCIUM
     Indication: BLOOD CHOLESTEROL INCREASED
     Route: 065
  3. PREDNISONE. [Concomitant]
     Active Substance: PREDNISONE
     Indication: CONDITION AGGRAVATED
     Route: 065
  4. HYDROXYZINE [Concomitant]
     Active Substance: HYDROXYZINE\HYDROXYZINE HYDROCHLORIDE
     Indication: PRURITUS
     Route: 065
  5. REMICADE [Suspect]
     Active Substance: INFLIXIMAB
     Indication: AUTOIMMUNE ARTHRITIS
     Dosage: 2009 OR 2010 (PREVIOUSLY REPORTED AS 2010 OR 2011)
     Route: 042
     Dates: end: 2012
  6. DIAZEPAM. [Concomitant]
     Active Substance: DIAZEPAM
     Route: 065
  7. REMICADE [Suspect]
     Active Substance: INFLIXIMAB
     Indication: AUTOIMMUNE ARTHRITIS
     Route: 042
     Dates: start: 201406
  8. REMICADE [Suspect]
     Active Substance: INFLIXIMAB
     Indication: AUTOIMMUNE ARTHRITIS
     Route: 042
     Dates: start: 2013
  9. REMICADE [Suspect]
     Active Substance: INFLIXIMAB
     Indication: AUTOIMMUNE ARTHRITIS
     Route: 042
     Dates: start: 201408, end: 2014
  10. HYDROXYZINE [Concomitant]
     Active Substance: HYDROXYZINE\HYDROXYZINE HYDROCHLORIDE
     Indication: RASH
     Route: 065
  11. CELEBREX [Concomitant]
     Active Substance: CELECOXIB
     Route: 065
  12. VALIUM [Concomitant]
     Active Substance: DIAZEPAM
     Route: 065

REACTIONS (19)
  - Uveitis [Recovering/Resolving]
  - Mental impairment [Recovered/Resolved]
  - Weight fluctuation [Not Recovered/Not Resolved]
  - Vasculitis [Recovering/Resolving]
  - Infusion site urticaria [Recovered/Resolved]
  - Therapeutic response decreased [Recovering/Resolving]
  - Autoimmune arthritis [Not Recovered/Not Resolved]
  - Hypersensitivity [Recovering/Resolving]
  - Infusion related reaction [Recovered/Resolved]
  - Influenza [Unknown]
  - Product use issue [Unknown]
  - Inappropriate schedule of drug administration [Unknown]
  - Drug hypersensitivity [Recovered/Resolved]
  - Adverse event [Recovering/Resolving]
  - Weight decreased [Unknown]
  - Malaise [Recovering/Resolving]
  - Off label use [Unknown]
  - Pyrexia [Not Recovered/Not Resolved]
  - Fatigue [Not Recovered/Not Resolved]

NARRATIVE: CASE EVENT DATE: 2012
